FAERS Safety Report 8582305-6 (Version None)
Quarter: 2012Q2

REPORT INFORMATION
  Report Type: 
  Country: None (occurrence: None)
  Receive Date: 20120423
  Receipt Date: 20100702
  Transmission Date: 20120825
  Serious: Yes (Hospitalization)
  Sender: FDA-Public Use
  Company Number: PHHY2010US40959

PATIENT
  Age: 28 Year
  Sex: Female
  Weight: 62.1 kg

DRUGS (5)
  1. HYDROCODONE BITARTRATE [Concomitant]
  2. ACETAMINOPHEN [Concomitant]
  3. NAPROXEN [Concomitant]
  4. EXJADE [Suspect]
     Indication: CHELATION THERAPY
     Dosage: 1000 MG, QD, ORAL
     Route: 048
  5. FOLIC ACID [Concomitant]

REACTIONS (2)
  - SICKLE CELL ANAEMIA WITH CRISIS [None]
  - DIARRHOEA [None]
